FAERS Safety Report 15691316 (Version 2)
Quarter: 2021Q4

REPORT INFORMATION
  Report Type: Report from Study
  Country: US (occurrence: US)
  Receive Date: 20181205
  Receipt Date: 20211102
  Transmission Date: 20220303
  Serious: Yes (Other)
  Sender: FDA-Public Use
  Company Number: US-JAZZ-JPI-P-027423

PATIENT
  Age: 45 Year
  Sex: Female
  Weight: 97.273 kg

DRUGS (20)
  1. XYREM [Suspect]
     Active Substance: SODIUM OXYBATE
     Indication: Narcolepsy
     Dosage: 3.75 GRAM, BID
     Route: 048
     Dates: start: 20121203, end: 201212
  2. XYREM [Suspect]
     Active Substance: SODIUM OXYBATE
     Indication: Cataplexy
     Dosage: 4.5 GRAM, BID
     Route: 048
     Dates: start: 201212
  3. LORAZEPAM [Suspect]
     Active Substance: LORAZEPAM
     Indication: Anxiety
     Dosage: 0.5 MG BID (PRN)
     Dates: end: 20121128
  4. ALBUTEROL [Concomitant]
     Active Substance: ALBUTEROL
     Indication: Asthma
  5. ARMODAFINIL [Concomitant]
     Active Substance: ARMODAFINIL
  6. FLUTICASONE PROPIONATE\SALMETEROL XINAFOATE [Concomitant]
     Active Substance: FLUTICASONE PROPIONATE\SALMETEROL XINAFOATE
  7. OMEPRAZOLE [Concomitant]
     Active Substance: OMEPRAZOLE
     Indication: Gastrooesophageal reflux disease
  8. METOPROLOL [Concomitant]
     Active Substance: METOPROLOL
     Dates: start: 2012
  9. BUSPIRONE [Concomitant]
     Active Substance: BUSPIRONE HYDROCHLORIDE
     Indication: Anxiety
     Dates: start: 201201
  10. BUSPIRONE [Concomitant]
     Active Substance: BUSPIRONE HYDROCHLORIDE
     Indication: Blood pressure measurement
  11. ROPINIROLE [Concomitant]
     Active Substance: ROPINIROLE
     Indication: Periodic limb movement disorder
     Dates: start: 201201
  12. ROPINIROLE [Concomitant]
     Active Substance: ROPINIROLE
     Indication: Restless legs syndrome
  13. LOSARTAN POTASSIUM [Concomitant]
     Active Substance: LOSARTAN POTASSIUM
  14. FLUOXETINE HYDROCHLORIDE [Concomitant]
     Active Substance: FLUOXETINE HYDROCHLORIDE
     Indication: Anxiety
     Dates: start: 201201
  15. FLUOXETINE HYDROCHLORIDE [Concomitant]
     Active Substance: FLUOXETINE HYDROCHLORIDE
     Indication: Blood pressure measurement
  16. ONDANSETRON [Concomitant]
     Active Substance: ONDANSETRON
     Indication: Nausea
  17. GABAPENTIN [Concomitant]
     Active Substance: GABAPENTIN
     Indication: Headache
  18. GABAPENTIN [Concomitant]
     Active Substance: GABAPENTIN
     Indication: Prophylaxis
  19. MODAFINIL [Concomitant]
     Active Substance: MODAFINIL
     Dates: start: 20130117
  20. FAMOTIDINE [Concomitant]
     Active Substance: FAMOTIDINE
     Indication: Gastric disorder

REACTIONS (28)
  - Hypertension [Unknown]
  - Oropharyngeal pain [Unknown]
  - Ear pain [Unknown]
  - Meniscus injury [Unknown]
  - Heavy menstrual bleeding [Unknown]
  - Heart rate increased [Unknown]
  - Muscle strain [Unknown]
  - Cold sweat [Unknown]
  - Nasopharyngitis [Recovered/Resolved]
  - Feeling cold [Unknown]
  - Asthma [Unknown]
  - Painful respiration [Unknown]
  - Feeling hot [Unknown]
  - Malaise [Unknown]
  - Sinusitis [Unknown]
  - Condition aggravated [Unknown]
  - Body temperature decreased [Unknown]
  - Chills [Unknown]
  - Chest pain [Unknown]
  - Alopecia [Not Recovered/Not Resolved]
  - Nausea [Unknown]
  - Tremor [Recovered/Resolved]
  - Dyspnoea [Unknown]
  - Pain [Unknown]
  - Decreased appetite [Unknown]
  - Diarrhoea [Unknown]
  - Headache [Unknown]
  - Fall [Unknown]

NARRATIVE: CASE EVENT DATE: 20121201
